FAERS Safety Report 21911037 (Version 1)
Quarter: 2023Q1

REPORT INFORMATION
  Report Type: Spontaneous
  Country: US (occurrence: US)
  Receive Date: 20230125
  Receipt Date: 20230125
  Transmission Date: 20230418
  Serious: No
  Sender: FDA-Public Use
  Company Number: US-ALLERGAN-2208445US

PATIENT
  Age: 65 Year
  Sex: Female

DRUGS (13)
  1. BOTOX COSMETIC [Suspect]
     Active Substance: ONABOTULINUMTOXINA
     Indication: Skin wrinkling
     Dosage: UNK UNK, SINGLE
     Dates: start: 20220222, end: 20220222
  2. BOTOX COSMETIC [Suspect]
     Active Substance: ONABOTULINUMTOXINA
     Indication: Skin wrinkling
     Dosage: UNK UNK, SINGLE
     Dates: start: 20220222, end: 20220222
  3. BOTOX COSMETIC [Suspect]
     Active Substance: ONABOTULINUMTOXINA
     Indication: Skin wrinkling
     Dosage: UNK UNK, SINGLE
     Dates: start: 20220222, end: 20220222
  4. JUVEDERM VOLUMA XC [Suspect]
     Active Substance: HYALURONIC ACID\LIDOCAINE HYDROCHLORIDE
     Indication: Product used for unknown indication
     Dosage: UNK, SINGLE
     Dates: start: 20220222, end: 20220222
  5. JUVEDERM VOLUMA XC [Suspect]
     Active Substance: HYALURONIC ACID\LIDOCAINE HYDROCHLORIDE
     Dosage: UNK, SINGLE
     Dates: start: 20220222, end: 20220222
  6. JUVEDERM [Suspect]
     Active Substance: HYALURONIC ACID
     Indication: Product used for unknown indication
     Dosage: UNK UNK, SINGLE
     Dates: start: 20220222, end: 20220222
  7. HYALURONIC ACID [Suspect]
     Active Substance: HYALURONIC ACID
     Indication: Product used for unknown indication
     Dosage: UNK, SINGLE
     Dates: start: 20220222, end: 20220222
  8. HYALURONIC ACID [Suspect]
     Active Substance: HYALURONIC ACID
     Dosage: UNK, SINGLE
     Dates: start: 20220222, end: 20220222
  9. LEVOTHYROXINE [Concomitant]
     Active Substance: LEVOTHYROXINE
     Dosage: 75 ?G
  10. SUMATRIPTAN [Concomitant]
     Active Substance: SUMATRIPTAN
     Dosage: 100 ?G
  11. CELECOXIB [Concomitant]
     Active Substance: CELECOXIB
     Dosage: 100 MG, PRN
  12. HYDROXYZINE [Concomitant]
     Active Substance: HYDROXYZINE HYDROCHLORIDE
     Dosage: 50 MG, PRN
  13. ALPRAZOLAM [Concomitant]
     Active Substance: ALPRAZOLAM
     Dosage: 0.5 MG, PRN

REACTIONS (2)
  - Vitreous floaters [Not Recovered/Not Resolved]
  - Photopsia [Not Recovered/Not Resolved]

NARRATIVE: CASE EVENT DATE: 20220303
